FAERS Safety Report 10912850 (Version 1)
Quarter: 2015Q1

REPORT INFORMATION
  Report Type: Spontaneous
  Country: GB (occurrence: None)
  Receive Date: 20150310
  Receipt Date: 20150310
  Transmission Date: 20150721
  Serious: Yes (Hospitalization)
  Sender: FDA-Public Use
  Company Number: 20150536

PATIENT
  Age: 39 Year
  Sex: Female

DRUGS (7)
  1. OMEPRAZOLE. [Concomitant]
     Active Substance: OMEPRAZOLE
  2. HUMIRA [Suspect]
     Active Substance: ADALIMUMAB
     Indication: PSORIATIC ARTHROPATHY
     Dosage: 1 X 40 MILLIGRAM IN 1 WEEK
     Route: 058
     Dates: start: 201004, end: 20100601
  3. PARACETAMOL [Concomitant]
     Active Substance: ACETAMINOPHEN
  4. CODEINE [Concomitant]
     Active Substance: CODEINE
  5. FOLIC ACID. [Concomitant]
     Active Substance: FOLIC ACID
  6. NAPROXEN. [Concomitant]
     Active Substance: NAPROXEN
  7. METHOTREXATE (METHOTREXATE) [Suspect]
     Active Substance: METHOTREXATE
     Indication: PSORIATIC ARTHROPATHY
     Dosage: 1 X 20 MILLIGRAM IN 1 WEEK
     Route: 058
     Dates: start: 200903

REACTIONS (11)
  - Erythema [None]
  - Onychomadesis [None]
  - Skin fissures [None]
  - Pustular psoriasis [None]
  - Rash generalised [None]
  - C-reactive protein increased [None]
  - Blister [None]
  - White blood cell count increased [None]
  - Skin exfoliation [None]
  - Peripheral swelling [None]
  - Alopecia [None]
